FAERS Safety Report 4530891-5 (Version None)
Quarter: 2004Q4

REPORT INFORMATION
  Report Type: 
  Country: None (occurrence: None)
  Receive Date: 20041215
  Receipt Date: 20041207
  Transmission Date: 20050328
  Serious: Yes (Other)
  Sender: FDA-Public Use
  Company Number: 2004UW24015

PATIENT
  Age: 77 Year
  Sex: Female
  Weight: 77.11 kg

DRUGS (4)
  1. CRESTOR [Suspect]
     Indication: BLOOD CHOLESTEROL INCREASED
     Dosage: 10 MG PO
     Route: 048
     Dates: start: 20040101, end: 20041108
  2. DIAZIDE [Concomitant]
  3. COREG [Concomitant]
  4. NORVASC [Concomitant]

REACTIONS (2)
  - MYALGIA [None]
  - SKIN TIGHTNESS [None]
